FAERS Safety Report 8704817 (Version 3)
Quarter: 2013Q1

REPORT INFORMATION
  Report Type: Report from Study
  Country: JP (occurrence: JP)
  Receive Date: 20120803
  Receipt Date: 20130318
  Transmission Date: 20140127
  Serious: Yes (Hospitalization, Other)
  Sender: FDA-Public Use
  Company Number: JP-009507513-1207JPN012646

PATIENT
  Age: 69 Year
  Sex: Female
  Weight: 41 kg

DRUGS (7)
  1. PEGINTRON [Suspect]
     Indication: CHRONIC HEPATITIS C
     Dosage: 1.5 MICROGRAM PER KILOGRAM, QW
     Route: 058
     Dates: start: 20120418, end: 20120718
  2. REBETOL [Suspect]
     Indication: CHRONIC HEPATITIS C
     Dosage: 400 MG, QD
     Route: 048
     Dates: start: 20120418, end: 20120605
  3. REBETOL [Suspect]
     Dosage: 200 MG, QD
     Route: 048
     Dates: start: 20120606, end: 20120717
  4. TELAVIC [Suspect]
     Indication: CHRONIC HEPATITIS C
     Dosage: 1500 MG, ONCE
     Route: 048
     Dates: start: 20120418, end: 20120626
  5. TELAVIC [Suspect]
     Dosage: 1000 MG, ONCE
     Route: 048
     Dates: start: 20120627, end: 20120703
  6. XYZAL [Concomitant]
     Indication: PROPHYLAXIS
     Dosage: 10 MG, QD
     Route: 048
     Dates: start: 20120412, end: 20120725
  7. SELBEX [Concomitant]
     Indication: PROPHYLAXIS
     Dosage: 1.5 G, QD
     Route: 048
     Dates: start: 20120418, end: 20120725

REACTIONS (6)
  - Anaemia [Recovered/Resolved]
  - Anaemia [Recovered/Resolved]
  - Anaemia [Recovered/Resolved]
  - Chills [Recovering/Resolving]
  - Pyrexia [Recovering/Resolving]
  - Neutrophil count decreased [Recovered/Resolved]
